FAERS Safety Report 8942249 (Version 1)
Quarter: 2012Q4

REPORT INFORMATION
  Report Type: Spontaneous
  Country: US (occurrence: None)
  Receive Date: 20121129
  Receipt Date: 20121129
  Transmission Date: 20130627
  Serious: Yes (Other)
  Sender: FDA-Public Use
  Company Number: None

PATIENT
  Age: 27 Year
  Sex: Female
  Weight: 99.79 kg

DRUGS (1)
  1. OCELLA [Suspect]
     Indication: IRREGULAR MENSTRUATION
     Dosage: 1 tablet daily po
     Route: 048
     Dates: start: 20121113, end: 20121128

REACTIONS (6)
  - Anger [None]
  - Fear [None]
  - Dyspepsia [None]
  - Migraine [None]
  - Feeling abnormal [None]
  - Abnormal behaviour [None]
